FAERS Safety Report 14594946 (Version 1)
Quarter: 2018Q1

REPORT INFORMATION
  Report Type: Spontaneous
  Country: US (occurrence: US)
  Receive Date: 20180302
  Receipt Date: 20180302
  Transmission Date: 20180509
  Serious: No
  Sender: FDA-Public Use
  Company Number: US-AKORN PHARMACEUTICALS-2017AKN00623

PATIENT
  Age: 34 Year
  Sex: Female
  Weight: 52.15 kg

DRUGS (1)
  1. MYORISAN [Suspect]
     Active Substance: ISOTRETINOIN
     Indication: ACNE
     Dosage: 40 MG, 1X/DAY
     Route: 048
     Dates: start: 20170412, end: 20170429

REACTIONS (8)
  - Pain of skin [Not Recovered/Not Resolved]
  - Skin fissures [Not Recovered/Not Resolved]
  - Muscle tightness [Not Recovered/Not Resolved]
  - Skin tightness [Not Recovered/Not Resolved]
  - Chapped lips [Not Recovered/Not Resolved]
  - Rectal haemorrhage [Recovered/Resolved]
  - Speech disorder [Not Recovered/Not Resolved]
  - Dry mouth [Not Recovered/Not Resolved]

NARRATIVE: CASE EVENT DATE: 2017
